FAERS Safety Report 4850558-3 (Version None)
Quarter: 2005Q4

REPORT INFORMATION
  Report Type: 
  Country: None (occurrence: None)
  Receive Date: 20051212
  Receipt Date: 20051205
  Transmission Date: 20060501
  Serious: Yes (Death)
  Sender: FDA-Public Use
  Company Number: HT-BOEHRINGER INGELHEIM PHARMACEUTICALS, INC.-2005-DE-05298GD

PATIENT

DRUGS (3)
  1. NEVIRAPINE [Suspect]
     Indication: HIV INFECTION
  2. ZIDOVUDINE [Concomitant]
     Indication: HIV INFECTION
  3. LAMIVUDINE [Concomitant]
     Indication: HIV INFECTION

REACTIONS (1)
  - STEVENS-JOHNSON SYNDROME [None]
